FAERS Safety Report 6800583-8 (Version None)
Quarter: 2010Q2

REPORT INFORMATION
  Report Type: 
  Country: None (occurrence: None)
  Receive Date: 20100625
  Receipt Date: 20100625
  Transmission Date: 20101027
  Serious: Yes (Hospitalization)
  Sender: FDA-Public Use
  Company Number: None

PATIENT
  Age: 69 Year
  Sex: Male
  Weight: 89.8 kg

DRUGS (2)
  1. IBUPROFEN [Suspect]
     Indication: OSTEOARTHRITIS
     Dates: start: 20061018, end: 20100329
  2. IBUPROFEN [Suspect]
     Indication: PAIN
     Dates: start: 20061018, end: 20100329

REACTIONS (2)
  - GASTRIC ULCER PERFORATION [None]
  - PNEUMOPERITONEUM [None]
